FAERS Safety Report 9969858 (Version 1)
Quarter: 2014Q1

REPORT INFORMATION
  Report Type: Spontaneous
  Country: US (occurrence: None)
  Receive Date: 20140127
  Receipt Date: 20140127
  Transmission Date: 20141002
  Serious: Yes (Other)
  Sender: FDA-Public Use
  Company Number: 1170869

PATIENT
  Age: 25 Year
  Sex: Female
  Weight: 58.97 kg

DRUGS (11)
  1. RITUXAN [Suspect]
     Indication: PRODUCT USED FOR UNKNOWN INDICATION
     Dosage: (580 MG), INTRAVENOUS (NOT OTHERWISE SPECIFIED)?
     Route: 042
     Dates: start: 20121110, end: 20121110
  2. AZATHIOPRINE (AZATHIOPRINE) [Concomitant]
  3. BUTALBITAL AC (ASPIRIN, CAFFEINE, BUTALBITAL, PARACETAMOL) TABLET) [Concomitant]
  4. FLUOXETINE (FLUOXETINE HYDROCHLORIDE) [Concomitant]
  5. PREDNISONE (PREDNISONE) [Concomitant]
  6. WARFARIN (WARFARIN SODIUM) [Concomitant]
  7. ZOLPIDEM (ZOLPIDEM TARTRATE) [Concomitant]
  8. OXYCODONE (OXYCODONE) [Concomitant]
  9. SOLU-MEDROL (METHYLPREDNISOLONE SODIUM SUCCINATE) [Concomitant]
  10. TYLENOL (PARACETAMOL) [Concomitant]
  11. BENADRYL (DIPHENHYDRAMINE HYDROCHLORIDE) [Concomitant]

REACTIONS (1)
  - Choking sensation [None]
